FAERS Safety Report 4691607-5 (Version None)
Quarter: 2005Q2

REPORT INFORMATION
  Report Type: 
  Country: None (occurrence: None)
  Receive Date: 20050608
  Receipt Date: 20040422
  Transmission Date: 20051028
  Serious: Yes (Other)
  Sender: FDA-Public Use
  Company Number: 349340

PATIENT
  Sex: Male
  Weight: 3.2 kg

DRUGS (3)
  1. ACCUTANE [Suspect]
     Indication: ACNE
     Dosage: 40 MG 1 PER 2 DAY ORAL
     Route: 048
     Dates: start: 20030315, end: 20030828
  2. BIRTH CONTROL PILLS (ORAL CONTRACEPTIVE NOS) [Concomitant]
  3. AMNESTEEM [Concomitant]

REACTIONS (2)
  - LIVE BIRTH [None]
  - NO ADVERSE EFFECT [None]
